FAERS Safety Report 11255619 (Version 1)
Quarter: 2015Q3

REPORT INFORMATION
  Report Type: Spontaneous
  Country: US (occurrence: US)
  Receive Date: 20150709
  Receipt Date: 20150709
  Transmission Date: 20151125
  Serious: Yes (Death, Hospitalization, Other)
  Sender: FDA-Public Use
  Company Number: US-MPIJNJ-2012-05222

PATIENT
  Age: 81 Year
  Sex: Female
  Weight: 63.49 kg

DRUGS (9)
  1. VINCRISTINE [Suspect]
     Active Substance: VINCRISTINE
     Indication: DIFFUSE LARGE B-CELL LYMPHOMA
     Dosage: 2 MG, CYCLIC
     Route: 040
     Dates: start: 20120306, end: 20120423
  2. DOXORUBICIN [Suspect]
     Active Substance: DOXORUBICIN
     Dosage: 68 MG, CYCLIC
     Dates: start: 20120326, end: 20120423
  3. CYCLOPHOSPHAMIDE. [Suspect]
     Active Substance: CYCLOPHOSPHAMIDE
     Indication: DIFFUSE LARGE B-CELL LYMPHOMA
     Dosage: 750 MG/M2, CYCLIC
     Route: 041
     Dates: start: 20120306, end: 20120423
  4. DOXORUBICIN [Suspect]
     Active Substance: DOXORUBICIN
     Indication: DIFFUSE LARGE B-CELL LYMPHOMA
     Dosage: 90 MG, CYCLIC
     Route: 040
     Dates: start: 20120306, end: 20120423
  5. VINCRISTINE [Suspect]
     Active Substance: VINCRISTINE
     Dosage: 1 MG, CYCLIC
     Dates: start: 20120423, end: 20120521
  6. DOXORUBICIN [Suspect]
     Active Substance: DOXORUBICIN
     Dosage: 45 MG, CYCLIC
     Dates: start: 20120423, end: 20120521
  7. RITUXIMAB [Suspect]
     Active Substance: RITUXIMAB
     Indication: DIFFUSE LARGE B-CELL LYMPHOMA
     Dosage: 375 MG/M2, CYCLIC
     Route: 041
     Dates: start: 20120306, end: 20120424
  8. VELCADE [Suspect]
     Active Substance: BORTEZOMIB
     Indication: DIFFUSE LARGE B-CELL LYMPHOMA
     Dosage: 1.78 MG, CYCLIC
     Route: 040
     Dates: start: 20120306, end: 20120426
  9. PREDNISONE. [Suspect]
     Active Substance: PREDNISONE
     Indication: DIFFUSE LARGE B-CELL LYMPHOMA
     Dosage: 100 MG, CYCLIC
     Route: 048
     Dates: start: 20120306, end: 20120427

REACTIONS (2)
  - Pneumonia [Unknown]
  - Non-Hodgkin^s lymphoma [Fatal]

NARRATIVE: CASE EVENT DATE: 20120601
